FAERS Safety Report 6779861-7 (Version None)
Quarter: 2010Q2

REPORT INFORMATION
  Report Type: 
  Country: None (occurrence: None)
  Receive Date: 20100618
  Receipt Date: 20100615
  Transmission Date: 20101027
  Serious: Yes (Death, Other)
  Sender: FDA-Public Use
  Company Number: PHHY2010JP24799

PATIENT
  Sex: Female

DRUGS (7)
  1. ZOLEDRONATE T29581+ [Suspect]
     Indication: MULTIPLE MYELOMA
     Dosage: 15 MG DILUTED TO 100ML
     Route: 042
     Dates: start: 20080308
  2. PREDONINE [Concomitant]
     Dosage: 15 MG, UNK
     Route: 048
     Dates: end: 20080504
  3. ENDOXAN [Concomitant]
     Dosage: 50 MG, UNK
     Route: 048
     Dates: end: 20080504
  4. PARIET [Concomitant]
     Dosage: 10 MG
     Route: 048
     Dates: end: 20080504
  5. EVISTA [Concomitant]
     Indication: OSTEOPOROSIS
     Dosage: 60 MG
     Route: 048
     Dates: end: 20080504
  6. MERISLON [Concomitant]
     Indication: DIZZINESS
     Dosage: 18 MG
     Route: 048
     Dates: end: 20080504
  7. MICARDIS [Concomitant]
     Dosage: 40 MG
     Route: 048
     Dates: end: 20080504

REACTIONS (4)
  - BLOOD CREATININE INCREASED [None]
  - BLOOD UREA INCREASED [None]
  - MALIGNANT NEOPLASM PROGRESSION [None]
  - MULTIPLE MYELOMA [None]
